FAERS Safety Report 4996256-7 (Version None)
Quarter: 2006Q2

REPORT INFORMATION
  Report Type: 
  Country: None (occurrence: None)
  Receive Date: 20060509
  Receipt Date: 20060501
  Transmission Date: 20061013
  Serious: Yes (Other)
  Sender: FDA-Public Use
  Company Number: PHEH2006US05677

PATIENT
  Age: 57 Year
  Sex: Male

DRUGS (1)
  1. DESFERAL [Suspect]
     Indication: BLOOD IRON INCREASED
     Dosage: 2000 MG, UNK
     Route: 042
     Dates: end: 20060330

REACTIONS (4)
  - DYSPNOEA [None]
  - FACE OEDEMA [None]
  - HYPERTENSION [None]
  - OXYGEN SATURATION DECREASED [None]
